FAERS Safety Report 5994936-8 (Version None)
Quarter: 2008Q4

REPORT INFORMATION
  Report Type: 
  Country: None (occurrence: None)
  Receive Date: 20081212
  Receipt Date: 20080917
  Transmission Date: 20090506
  Serious: No
  Sender: FDA-Public Use
  Company Number: US-ABBOTT-08P-163-0477007-00

PATIENT
  Sex: Male
  Weight: 102.15 kg

DRUGS (3)
  1. HUMIRA [Suspect]
     Indication: CROHN'S DISEASE
     Route: 050
     Dates: start: 20080801
  2. ESOMEPRAZOLE MAGNESIUM [Concomitant]
     Indication: CROHN'S DISEASE
     Route: 048
     Dates: start: 20070101
  3. DRONABINOL [Concomitant]
     Indication: CROHN'S DISEASE
     Route: 048
     Dates: start: 20070101

REACTIONS (4)
  - ABDOMINAL PAIN [None]
  - ALOPECIA [None]
  - CROHN'S DISEASE [None]
  - URINARY TRACT INFECTION [None]
